FAERS Safety Report 19291552 (Version 5)
Quarter: 2022Q1

REPORT INFORMATION
  Report Type: Report from Study
  Country: CA (occurrence: CA)
  Receive Date: 20210523
  Receipt Date: 20220223
  Transmission Date: 20220423
  Serious: Yes (Other)
  Sender: FDA-Public Use
  Company Number: CA-JNJFOC-20210532360

PATIENT
  Sex: Female
  Weight: 68 kg

DRUGS (1)
  1. REMICADE [Suspect]
     Active Substance: INFLIXIMAB
     Indication: Behcet^s syndrome
     Dosage: 7.35 MG/KG
     Route: 042
     Dates: start: 20170831

REACTIONS (2)
  - Chronic leukaemia [Unknown]
  - Inappropriate schedule of product administration [Unknown]
